FAERS Safety Report 17824453 (Version 1)
Quarter: 2020Q2

REPORT INFORMATION
  Report Type: Spontaneous
  Country: US (occurrence: US)
  Receive Date: 20200526
  Receipt Date: 20200526
  Transmission Date: 20200714
  Serious: Yes (Other)
  Sender: FDA-Public Use
  Company Number: US-ELI_LILLY_AND_COMPANY-US202005005854

PATIENT
  Age: 15 Year
  Sex: Male

DRUGS (1)
  1. HUMATROPE [Suspect]
     Active Substance: SOMATROPIN
     Indication: SHORT STATURE
     Dosage: 2.4 MG, DAILY
     Route: 065
     Dates: start: 201812

REACTIONS (3)
  - Limb injury [Unknown]
  - Limb injury [Unknown]
  - Cartilage injury [Unknown]

NARRATIVE: CASE EVENT DATE: 201909
